FAERS Safety Report 5038720-0 (Version None)
Quarter: 2006Q2

REPORT INFORMATION
  Report Type: 
  Country: None (occurrence: None)
  Receive Date: 20060601
  Receipt Date: 20060313
  Transmission Date: 20061013
  Serious: No
  Sender: FDA-Public Use
  Company Number: 2006PV010161

PATIENT
  Age: 59 Year
  Sex: Female

DRUGS (9)
  1. BYETTA [Suspect]
     Indication: DIABETES MELLITUS NON-INSULIN-DEPENDENT
     Dosage: SEE IMAGE
     Route: 058
     Dates: start: 20060125, end: 20060224
  2. BYETTA [Suspect]
     Indication: DIABETES MELLITUS NON-INSULIN-DEPENDENT
     Dosage: SEE IMAGE
     Route: 058
     Dates: start: 20060225
  3. DITROPAN [Concomitant]
  4. TRAMTERENE WITH HCTZ [Concomitant]
  5. NABUMETOME [Concomitant]
  6. NIASPAN ER [Concomitant]
  7. LISINOPRIL [Concomitant]
  8. AZINZA [Concomitant]
  9. REGLAN [Concomitant]

REACTIONS (4)
  - CONSTIPATION [None]
  - INJECTION SITE HAEMORRHAGE [None]
  - NAUSEA [None]
  - VOMITING [None]
